FAERS Safety Report 16902085 (Version 1)
Quarter: 2019Q4

REPORT INFORMATION
  Report Type: Spontaneous
  Country: US (occurrence: US)
  Receive Date: 20191010
  Receipt Date: 20191010
  Transmission Date: 20200122
  Serious: No
  Sender: FDA-Public Use
  Company Number: US-HIKMA PHARMACEUTICALS USA INC.-US-H14001-18-07465

PATIENT
  Sex: Female

DRUGS (1)
  1. METHOTREXATE INJECTION [Suspect]
     Active Substance: METHOTREXATE
     Indication: PRODUCT USED FOR UNKNOWN INDICATION
     Route: 065

REACTIONS (5)
  - Sensation of foreign body [Unknown]
  - Chills [Unknown]
  - Swollen tongue [Unknown]
  - Swelling face [Unknown]
  - Dyspnoea [Unknown]
